FAERS Safety Report 8195844-7 (Version None)
Quarter: 2012Q1

REPORT INFORMATION
  Report Type: 
  Country: None (occurrence: None)
  Receive Date: 20120308
  Receipt Date: 20120305
  Transmission Date: 20120608
  Serious: Yes (Other)
  Sender: FDA-Public Use
  Company Number: US-ABBOTT-12P-163-0901123-00

PATIENT
  Sex: Male

DRUGS (4)
  1. ATENOLOL [Concomitant]
     Indication: PRODUCT USED FOR UNKNOWN INDICATION
     Dates: start: 20020101
  2. HUMIRA [Suspect]
     Indication: PSORIASIS
     Dates: start: 20100505, end: 20101001
  3. RANITIDINE [Concomitant]
     Indication: PRODUCT USED FOR UNKNOWN INDICATION
     Dates: start: 20020101
  4. ENALAPRIL MALEATE [Concomitant]
     Indication: PRODUCT USED FOR UNKNOWN INDICATION
     Dates: start: 20020101

REACTIONS (3)
  - COLON CANCER [None]
  - ABDOMINAL PAIN [None]
  - HAEMATOCHEZIA [None]
